FAERS Safety Report 8387813-9 (Version None)
Quarter: 2012Q2

REPORT INFORMATION
  Report Type: 
  Country: None (occurrence: None)
  Receive Date: 20120525
  Receipt Date: 20120424
  Transmission Date: 20120825
  Serious: No
  Sender: FDA-Public Use
  Company Number: PR-BRISTOL-MYERS SQUIBB COMPANY-16548042

PATIENT
  Age: 55 Year
  Sex: Female

DRUGS (1)
  1. KOMBIGLYZE XR [Suspect]
     Indication: DIABETES MELLITUS
     Dosage: 1DF: 5/500MG

REACTIONS (1)
  - PRURITUS GENERALISED [None]
